FAERS Safety Report 16807275 (Version 1)
Quarter: 2019Q3

REPORT INFORMATION
  Report Type: Report from Study
  Country: SE (occurrence: SE)
  Receive Date: 20190913
  Receipt Date: 20190913
  Transmission Date: 20191005
  Serious: Yes (Hospitalization, Other)
  Sender: FDA-Public Use
  Company Number: SE-TAKEDA-2019TUS052113

PATIENT
  Age: 69 Year
  Sex: Male
  Weight: 77 kg

DRUGS (2)
  1. LENALIDOMIDE [Suspect]
     Active Substance: LENALIDOMIDE
     Indication: PLASMA CELL MYELOMA
     Dosage: 25 MILLIGRAM
     Route: 065
     Dates: start: 20190905
  2. IXAZOMIB [Suspect]
     Active Substance: IXAZOMIB
     Indication: PLASMA CELL MYELOMA
     Dosage: 4 MILLIGRAM
     Route: 065
     Dates: start: 20190905

REACTIONS (2)
  - Haemolysis [Not Recovered/Not Resolved]
  - Pyrexia [Not Recovered/Not Resolved]

NARRATIVE: CASE EVENT DATE: 20190911
